FAERS Safety Report 9620335 (Version 2)
Quarter: 2013Q4

REPORT INFORMATION
  Report Type: Spontaneous
  Country: US (occurrence: US)
  Receive Date: 20131014
  Receipt Date: 20131014
  Transmission Date: 20140711
  Serious: No
  Sender: FDA-Public Use
  Company Number: US-ALLERGAN-1217007US

PATIENT
  Age: 66 Year
  Sex: Female

DRUGS (3)
  1. ALPHAGAN P [Suspect]
     Indication: GLAUCOMA
     Dosage: 1 GTT, BID
     Route: 047
     Dates: start: 20121203, end: 20121206
  2. TEGRETOL [Concomitant]
     Indication: EPILEPSY
     Dosage: 200 MG, QD
     Route: 048
  3. SUPLEMENTS [Concomitant]
     Indication: SUPPLEMENTATION THERAPY
     Dosage: UNK
     Route: 048

REACTIONS (6)
  - Eye discharge [Unknown]
  - Eye discharge [Recovering/Resolving]
  - Eyelid margin crusting [Unknown]
  - Eye discharge [Unknown]
  - Ocular hyperaemia [Recovering/Resolving]
  - Eye irritation [Unknown]
